FAERS Safety Report 5592163-X (Version None)
Quarter: 2008Q1

REPORT INFORMATION
  Report Type: 
  Country: None (occurrence: None)
  Receive Date: 20080115
  Receipt Date: 20071115
  Transmission Date: 20080703
  Serious: No
  Sender: FDA-Public Use
  Company Number: US-ABBOTT-07P-163-0425265-00

PATIENT
  Sex: Female
  Weight: 61.29 kg

DRUGS (5)
  1. ADVICOR [Suspect]
     Indication: BLOOD CHOLESTEROL INCREASED
     Route: 048
     Dates: start: 20071106
  2. ADVICOR [Suspect]
     Indication: LOW DENSITY LIPOPROTEIN INCREASED
  3. ADVICOR [Suspect]
     Indication: BLOOD TRIGLYCERIDES INCREASED
  4. EZETIMIBE [Concomitant]
     Indication: BLOOD CHOLESTEROL INCREASED
     Route: 048
  5. IRIMIDEX [Concomitant]
     Indication: BREAST CANCER
     Route: 048

REACTIONS (1)
  - FLUSHING [None]
